FAERS Safety Report 21324050 (Version 3)
Quarter: 2022Q4

REPORT INFORMATION
  Report Type: Spontaneous
  Country: US (occurrence: US)
  Receive Date: 20220912
  Receipt Date: 20221020
  Transmission Date: 20230113
  Serious: Yes (Other)
  Sender: FDA-Public Use
  Company Number: US-PFIZER INC-202201141673

PATIENT
  Age: 62 Year
  Sex: Female

DRUGS (1)
  1. PREMARIN [Suspect]
     Active Substance: ESTROGENS, CONJUGATED
     Indication: Hot flush
     Dosage: 1 DF, 1X/DAY (0.625MG, 1 TABLET A DAY, BY MOUTH)
     Route: 048

REACTIONS (7)
  - Spinal operation [Unknown]
  - Limb operation [Unknown]
  - Night sweats [Unknown]
  - Insomnia [Unknown]
  - Nasopharyngitis [Unknown]
  - Limb discomfort [Unknown]
  - Gait disturbance [Unknown]
